FAERS Safety Report 9643043 (Version 1)
Quarter: 2013Q4

REPORT INFORMATION
  Report Type: Spontaneous
  Country: US (occurrence: None)
  Receive Date: 20131023
  Receipt Date: 20131023
  Transmission Date: 20140711
  Serious: Yes (Death)
  Sender: FDA-Public Use
  Company Number: None

PATIENT
  Age: 70 Year
  Sex: Female
  Weight: 109 kg

DRUGS (12)
  1. VANCOMYCIN [Suspect]
     Indication: CELLULITIS
     Dosage: 2000MG/500ML NS, QD, IV
     Route: 042
  2. VANCOMYCIN [Suspect]
     Indication: ABSCESS
     Dosage: 2000MG/500ML NS, QD, IV
     Route: 042
  3. METRONIDAZOLE [Concomitant]
  4. LISINOPRIL [Concomitant]
  5. SERTRALINE [Concomitant]
  6. HCTZ [Concomitant]
  7. CYCLOBENZAPRINE [Concomitant]
  8. AMLODIPINE [Concomitant]
  9. INSULIN LISPRO [Concomitant]
  10. LEVEMIR [Concomitant]
  11. NORCO [Concomitant]
  12. CEFEPIME [Concomitant]

REACTIONS (5)
  - Nausea [None]
  - Feeling hot [None]
  - Unresponsive to stimuli [None]
  - Pulse absent [None]
  - Anaphylactic reaction [None]
